FAERS Safety Report 7988489-2 (Version None)
Quarter: 2011Q4

REPORT INFORMATION
  Report Type: 
  Country: None (occurrence: None)
  Receive Date: 20111216
  Receipt Date: 20111208
  Transmission Date: 20120403
  Serious: Yes (Hospitalization, Disabling, Other)
  Sender: FDA-Public Use
  Company Number: US-MERCK-1107USA03604

PATIENT
  Age: 44 Year
  Sex: Female
  Weight: 67 kg

DRUGS (15)
  1. FOSAMAX [Suspect]
     Route: 048
     Dates: start: 19980101, end: 20080101
  2. VITAMIN E [Concomitant]
     Route: 065
  3. ASCORBIC ACID [Concomitant]
     Route: 065
  4. PREMARIN [Concomitant]
     Indication: HORMONE THERAPY
     Route: 048
     Dates: start: 19880101, end: 20040101
  5. FOSAMAX [Suspect]
     Route: 048
     Dates: start: 19980101, end: 20080101
  6. FOSAMAX [Suspect]
     Route: 048
     Dates: start: 19980101, end: 20100101
  7. OMEGA-3 MARINE TRIGLYCERIDES [Concomitant]
     Route: 065
  8. ALENDRONATE SODIUM [Suspect]
     Indication: OSTEOPOROSIS
     Route: 048
     Dates: start: 20081231, end: 20100125
  9. FOSAMAX [Suspect]
     Route: 048
     Dates: start: 20041024
  10. FOSAMAX [Suspect]
     Route: 048
     Dates: start: 19980101, end: 20100101
  11. FOSAMAX [Suspect]
     Indication: OSTEOPENIA
     Route: 048
     Dates: start: 19980611, end: 20090101
  12. VITAMINS (UNSPECIFIED) [Concomitant]
     Route: 065
  13. ALENDRONATE SODIUM [Suspect]
     Indication: OSTEOPENIA
     Route: 048
     Dates: start: 20081231, end: 20100125
  14. FOSAMAX [Suspect]
     Indication: OSTEOPOROSIS
     Route: 048
     Dates: start: 19980611, end: 20090101
  15. FOSAMAX [Suspect]
     Route: 048
     Dates: start: 20041024

REACTIONS (46)
  - CALCULUS URETERIC [None]
  - OEDEMA PERIPHERAL [None]
  - SINUSITIS [None]
  - GASTROINTESTINAL HAEMORRHAGE [None]
  - CONJUNCTIVITIS [None]
  - NEPHROLITHIASIS [None]
  - CHEST PAIN [None]
  - PANIC ATTACK [None]
  - ANXIETY [None]
  - FEMUR FRACTURE [None]
  - DEVICE FAILURE [None]
  - INFUSION SITE EXTRAVASATION [None]
  - FRACTURE MALUNION [None]
  - EAR PAIN [None]
  - VITAMIN D DEFICIENCY [None]
  - INTERVERTEBRAL DISC DEGENERATION [None]
  - GAIT DISTURBANCE [None]
  - LIVER DISORDER [None]
  - BACK DISORDER [None]
  - LOW TURNOVER OSTEOPATHY [None]
  - FATIGUE [None]
  - OVERDOSE [None]
  - DACRYOSTENOSIS ACQUIRED [None]
  - VERTIGO [None]
  - PAIN IN EXTREMITY [None]
  - SINUS DISORDER [None]
  - ARTHRALGIA [None]
  - MITRAL VALVE INCOMPETENCE [None]
  - COLON ADENOMA [None]
  - SLEEP DISORDER [None]
  - INAPPROPRIATE SCHEDULE OF DRUG ADMINISTRATION [None]
  - HYPERTENSION [None]
  - GASTRIC ULCER [None]
  - ADVERSE DRUG REACTION [None]
  - FALL [None]
  - HEPATIC ENZYME INCREASED [None]
  - PNEUMONIA [None]
  - MIGRAINE [None]
  - BACK PAIN [None]
  - BRONCHITIS [None]
  - PULMONARY EMBOLISM [None]
  - NEUROPATHY PERIPHERAL [None]
  - STRESS [None]
  - RADICULOPATHY [None]
  - LACERATION [None]
  - FOOT DEFORMITY [None]
